FAERS Safety Report 8405903-9 (Version None)
Quarter: 2012Q2

REPORT INFORMATION
  Report Type: 
  Country: None (occurrence: None)
  Receive Date: 20120529
  Receipt Date: 20060207
  Transmission Date: 20120825
  Serious: Yes (Hospitalization)
  Sender: FDA-Public Use
  Company Number: 15691-USA-06-0403

PATIENT
  Age: 70 Year
  Sex: Male

DRUGS (10)
  1. CARVEDILOL [Concomitant]
  2. ESOMEZOL [Concomitant]
  3. ISOSORBID DINITRATE (ISOSORBIDE DINITRATE) [Concomitant]
  4. EPLERENON (EPLERENONE) [Concomitant]
  5. XIPAMID (XIPAMIDE) [Concomitant]
  6. LOSARTAN POTASSIUM [Concomitant]
  7. INSULIN (INSULIN) INJECTION [Concomitant]
  8. MOLSIDOMIN ^HEUMANN^ (MOLSIDOMINE) [Concomitant]
  9. TOLVAPTAN (TOLVAPTAN(V4.1)) 30MG [Suspect]
     Indication: CARDIAC FAILURE CONGESTIVE
     Dosage: 30 MG, QD, ORAL
     Route: 048
     Dates: start: 20051123, end: 20060202
  10. ALLOPURINOL [Concomitant]

REACTIONS (7)
  - ISCHAEMIC CARDIOMYOPATHY [None]
  - CARDIAC FAILURE [None]
  - QRS AXIS ABNORMAL [None]
  - PULMONARY ARTERIAL HYPERTENSION [None]
  - CONDITION AGGRAVATED [None]
  - ATRIAL FIBRILLATION [None]
  - BUNDLE BRANCH BLOCK RIGHT [None]
